FAERS Safety Report 20709405 (Version 1)
Quarter: 2022Q2

REPORT INFORMATION
  Report Type: Spontaneous
  Country: FR (occurrence: FR)
  Receive Date: 20220414
  Receipt Date: 20220414
  Transmission Date: 20220720
  Serious: Yes (Hospitalization)
  Sender: FDA-Public Use
  Company Number: None

PATIENT
  Age: 61 Year
  Sex: Female
  Weight: 62 kg

DRUGS (2)
  1. KEYTRUDA [Suspect]
     Active Substance: PEMBROLIZUMAB
     Indication: Lung adenocarcinoma
     Dosage: 200 MILLIGRAM, 1 CYCLICAL
     Route: 041
     Dates: start: 20220107
  2. ALIMTA [Suspect]
     Active Substance: PEMETREXED DISODIUM
     Indication: Lung adenocarcinoma
     Dosage: 650 MILLIGRAM, 1 CYCLICAL
     Route: 041
     Dates: start: 20220107

REACTIONS (1)
  - Hepatic atrophy [Not Recovered/Not Resolved]

NARRATIVE: CASE EVENT DATE: 20220316
